FAERS Safety Report 20712990 (Version 2)
Quarter: 2022Q2

REPORT INFORMATION
  Report Type: Spontaneous
  Country: US (occurrence: US)
  Receive Date: 20220415
  Receipt Date: 20220526
  Transmission Date: 20220721
  Serious: No
  Sender: FDA-Public Use
  Company Number: US-PFIZER INC-2018114411

PATIENT
  Age: 4 Year
  Sex: Female

DRUGS (4)
  1. GENOTROPIN [Suspect]
     Active Substance: SOMATROPIN
     Indication: Growth hormone deficiency
     Dosage: 0.5 MG, UNK
  2. GENOTROPIN [Suspect]
     Active Substance: SOMATROPIN
     Dosage: 1.0 MG, UNK
     Dates: start: 20180411
  3. GENOTROPIN [Suspect]
     Active Substance: SOMATROPIN
     Dosage: UNK(0.4 ONE DAY TO 0.6 THE NEXT DAY, SIX DAYS A WEEK SO, NOTHING ON SUNDAY)
     Dates: start: 20180417
  4. GENOTROPIN [Suspect]
     Active Substance: SOMATROPIN
     Dosage: 2 MG (SIX TIMES A WEEK)

REACTIONS (6)
  - Device breakage [Unknown]
  - Product prescribing error [Unknown]
  - Product storage error [Unknown]
  - Product dose omission issue [Unknown]
  - Device issue [Unknown]
  - Drug dose omission by device [Unknown]
